FAERS Safety Report 9412437 (Version 1)
Quarter: 2013Q2

REPORT INFORMATION
  Report Type: Spontaneous
  Country: None (occurrence: None)
  Receive Date: 20130424
  Receipt Date: 20130424
  Transmission Date: 20140414
  Serious: Yes (Hospitalization)
  Sender: FDA-Public Use
  Company Number: 2011S1001568

PATIENT
  Age: 74 Year
  Sex: Female

DRUGS (9)
  1. LIVALO (PITAVASTATIN) TABLETS 2 MG [Suspect]
     Route: 048
     Dates: start: 20110914, end: 20111103
  2. FLUITRAN [Concomitant]
  3. IRBESARTAN [Concomitant]
  4. NORVASC [Concomitant]
  5. ASPIRIN [Concomitant]
  6. MODIPANOL [Concomitant]
  7. MIKELAN [Concomitant]
  8. FLUMETHOLON [Concomitant]
  9. SINOMIN [Concomitant]

REACTIONS (5)
  - Abdominal pain [None]
  - Haematochezia [None]
  - Blood pressure systolic increased [None]
  - Abdominal distension [None]
  - Body temperature decreased [None]
